FAERS Safety Report 9050563 (Version 5)
Quarter: 2013Q3

REPORT INFORMATION
  Report Type: Spontaneous
  Country: US (occurrence: US)
  Receive Date: 20130205
  Receipt Date: 20130812
  Transmission Date: 20140515
  Serious: Yes (Hospitalization, Disabling, Other)
  Sender: FDA-Public Use
  Company Number: US-009507513-1302USA001568

PATIENT
  Sex: Female

DRUGS (3)
  1. FOSAMAX [Suspect]
     Indication: OSTEOPOROSIS
     Dosage: 70 MG, UNK
     Route: 048
     Dates: start: 2006, end: 2010
  2. ANTINEOPLASTIC (UNSPECIFIED) [Concomitant]
     Indication: BREAST CANCER
     Dosage: UNK
     Dates: start: 2005, end: 2008
  3. ALENDRONATE SODIUM [Suspect]
     Dosage: 70 MG, UNK

REACTIONS (26)
  - Femur fracture [Recovering/Resolving]
  - Intramedullary rod insertion [Unknown]
  - Metastasis [Unknown]
  - Acute myeloid leukaemia [Unknown]
  - Bone marrow transplant [Unknown]
  - Pseudomembranous colitis [Unknown]
  - Fall [Unknown]
  - Depression [Unknown]
  - Anxiety [Unknown]
  - Dental caries [Unknown]
  - Adverse event [Unknown]
  - Spinal compression fracture [Unknown]
  - Fall [Unknown]
  - Hypertension [Unknown]
  - Compression fracture [Unknown]
  - Osteopenia [Unknown]
  - Exostosis [Unknown]
  - Joint effusion [Unknown]
  - Intervertebral disc disorder [Unknown]
  - Intervertebral disc protrusion [Unknown]
  - Intervertebral disc protrusion [Unknown]
  - Osteoarthritis [Unknown]
  - Myelodysplastic syndrome [Unknown]
  - Blood alkaline phosphatase increased [Unknown]
  - Alopecia [Unknown]
  - Back pain [Unknown]
